FAERS Safety Report 5607516-0 (Version None)
Quarter: 2008Q1

REPORT INFORMATION
  Report Type: 
  Country: None (occurrence: None)
  Receive Date: 20080130
  Receipt Date: 20080125
  Transmission Date: 20080703
  Serious: Yes (Disabling)
  Sender: FDA-Public Use
  Company Number: GB-AVENTIS-200810381GDDC

PATIENT
  Age: 48 Year
  Sex: Female

DRUGS (5)
  1. LANTUS [Suspect]
     Route: 058
     Dates: start: 20080107
  2. GLICLAZIDE [Concomitant]
     Route: 048
     Dates: start: 20070301
  3. MICARDIS HCT [Concomitant]
     Indication: HYPERTENSION
     Dosage: DOSE: 80/12.5
     Route: 048
     Dates: start: 20071206
  4. DOXAZOSIN [Concomitant]
     Indication: HYPERTENSION
     Route: 048
     Dates: start: 20070107
  5. OESTROGEN NOS [Concomitant]
     Route: 048
     Dates: start: 20070201

REACTIONS (9)
  - ARTHRALGIA [None]
  - BACK PAIN [None]
  - CHEST PAIN [None]
  - FEELING ABNORMAL [None]
  - HEADACHE [None]
  - HYPOKINESIA [None]
  - JOINT STIFFNESS [None]
  - MYALGIA [None]
  - SLEEP DISORDER [None]
